FAERS Safety Report 10597664 (Version 2)
Quarter: 2015Q1

REPORT INFORMATION
  Report Type: Spontaneous
  Country: DK (occurrence: DK)
  Receive Date: 20141121
  Receipt Date: 20150101
  Transmission Date: 20150720
  Serious: Yes (Hospitalization)
  Sender: FDA-Public Use
  Company Number: DK-BIOGENIDEC-2014BI119564

PATIENT
  Sex: Male

DRUGS (9)
  1. PERSANTINE [Concomitant]
     Active Substance: DIPYRIDAMOLE
  2. MAGNYL ACETYLSALICYLIC ACID [Concomitant]
  3. TECFIDERA [Suspect]
     Active Substance: DIMETHYL FUMARATE
     Indication: MULTIPLE SCLEROSIS
     Route: 048
     Dates: start: 20140804, end: 201409
  4. TECFIDERA [Suspect]
     Active Substance: DIMETHYL FUMARATE
     Indication: MULTIPLE SCLEROSIS
     Route: 048
     Dates: start: 201409, end: 20141028
  5. SIMIVASTIN [Concomitant]
  6. CORODIL [Concomitant]
     Active Substance: DIPYRIDAMOLE
  7. CORODIL [Concomitant]
     Active Substance: DIPYRIDAMOLE
  8. CENTYL MITE [Concomitant]
  9. VITAMIN B [Concomitant]
     Active Substance: VITAMIN B

REACTIONS (5)
  - Gastrointestinal disorder [Recovered/Resolved]
  - Confusional state [Recovered/Resolved]
  - Hyperhidrosis [Recovered/Resolved]
  - Prescribed underdose [Recovered/Resolved]
  - Dysstasia [Recovered/Resolved]

NARRATIVE: CASE EVENT DATE: 201408
